FAERS Safety Report 4765908-6 (Version None)
Quarter: 2005Q3

REPORT INFORMATION
  Report Type: 
  Country: None (occurrence: None)
  Receive Date: 20050908
  Receipt Date: 20050908
  Transmission Date: 20060218
  Serious: No
  Sender: FDA-Public Use
  Company Number: None

PATIENT
  Age: 64 Year
  Sex: Male
  Weight: 99.7913 kg

DRUGS (1)
  1. FLOMAX [Suspect]
     Indication: BENIGN PROSTATIC HYPERPLASIA
     Dosage: 0.4 MG ONE PO QD
     Route: 048

REACTIONS (4)
  - CATARACT OPERATION COMPLICATION [None]
  - IRIDOCELE [None]
  - MIOSIS [None]
  - PROCEDURAL COMPLICATION [None]
